FAERS Safety Report 10395747 (Version 1)
Quarter: 2014Q3

REPORT INFORMATION
  Report Type: Spontaneous
  Country: CN (occurrence: CN)
  Receive Date: 20140820
  Receipt Date: 20140820
  Transmission Date: 20150326
  Serious: Yes (Other)
  Sender: FDA-Public Use
  Company Number: CN-PFIZER INC-2014229043

PATIENT
  Age: 76 Year
  Sex: Male

DRUGS (4)
  1. FLUCONAZOLE. [Suspect]
     Active Substance: FLUCONAZOLE
     Indication: CANDIDA INFECTION
     Dosage: 0.4 G, 1X/DAY
  2. FLUCONAZOLE. [Suspect]
     Active Substance: FLUCONAZOLE
     Dosage: UNK
  3. SULBENICILLIN [Concomitant]
     Indication: LUNG INFECTION
     Dosage: 4 G, 3X/DAY
  4. AMBROXOL [Concomitant]
     Active Substance: AMBROXOL
     Indication: LUNG INFECTION
     Dosage: 30 MG, 3X/DAY
     Route: 041

REACTIONS (1)
  - Drug-induced liver injury [Recovered/Resolved]
